FAERS Safety Report 10395314 (Version 3)
Quarter: 2014Q3

REPORT INFORMATION
  Report Type: Spontaneous
  Country: US (occurrence: US)
  Receive Date: 20140820
  Receipt Date: 20140926
  Transmission Date: 20150326
  Serious: Yes (Other)
  Sender: FDA-Public Use
  Company Number: US-JNJFOC-20140805368

PATIENT

DRUGS (2)
  1. TORISEL [Interacting]
     Active Substance: TEMSIROLIMUS
     Indication: NEOPLASM MALIGNANT
     Route: 042
  2. DOXORUBICIN [Suspect]
     Active Substance: DOXORUBICIN
     Indication: NEOPLASM MALIGNANT
     Route: 042

REACTIONS (23)
  - White blood cell count decreased [Unknown]
  - Blood albumin decreased [Unknown]
  - Headache [Unknown]
  - Dyspepsia [Unknown]
  - Decreased appetite [Unknown]
  - Aspartate aminotransferase increased [Unknown]
  - Neutropenia [Unknown]
  - Malaise [Unknown]
  - Haemoglobin decreased [Unknown]
  - Platelet count decreased [Unknown]
  - Fatigue [Unknown]
  - Drug interaction [Unknown]
  - Dyspnoea [Unknown]
  - Blood triglycerides increased [Unknown]
  - Rash [Unknown]
  - Lymphocyte count decreased [Unknown]
  - Stomatitis [Unknown]
  - Nausea [Unknown]
  - Blood glucose increased [Unknown]
  - Thrombocytopenia [Unknown]
  - Mucosal inflammation [Unknown]
  - Alanine aminotransferase increased [Unknown]
  - Pruritus [Unknown]
